FAERS Safety Report 18291618 (Version 1)
Quarter: 2020Q3

REPORT INFORMATION
  Report Type: Spontaneous
  Country: GB (occurrence: GB)
  Receive Date: 20200922
  Receipt Date: 20200922
  Transmission Date: 20201103
  Serious: Yes (Disabling)
  Sender: FDA-Public Use
  Company Number: GB-DRREDDYS-GER/UKI/20/0126855

PATIENT
  Age: 66 Year
  Sex: Female

DRUGS (3)
  1. PARACETAMOL [Concomitant]
     Active Substance: ACETAMINOPHEN
     Indication: PRODUCT USED FOR UNKNOWN INDICATION
  2. CALCICHEW D3 [Concomitant]
     Active Substance: CALCIUM\CHOLECALCIFEROL
     Indication: PRODUCT USED FOR UNKNOWN INDICATION
  3. LETROZOLE 2.5 MG FILM?COATED TABLETS [Suspect]
     Active Substance: LETROZOLE
     Indication: PRODUCT USED FOR UNKNOWN INDICATION
     Route: 048
     Dates: start: 20200601, end: 20200806

REACTIONS (6)
  - Hyperhidrosis [Recovered/Resolved]
  - Product substitution issue [Unknown]
  - Insomnia [Recovered/Resolved]
  - Hot flush [Recovered/Resolved]
  - Arthralgia [Recovered/Resolved]
  - Malaise [Recovered/Resolved]

NARRATIVE: CASE EVENT DATE: 20200603
